FAERS Safety Report 23035913 (Version 2)
Quarter: 2023Q4

REPORT INFORMATION
  Report Type: Other
  Country: TR (occurrence: TR)
  Receive Date: 20231006
  Receipt Date: 20231208
  Transmission Date: 20240110
  Serious: Yes (Other)
  Sender: FDA-Public Use
  Company Number: TR-002147023-NVSC2023TR210654

PATIENT
  Sex: Male
  Weight: 1.1 kg

DRUGS (2)
  1. LUCENTIS [Suspect]
     Active Substance: RANIBIZUMAB
     Indication: Retinopathy of prematurity
     Dosage: 0.15 MG (LOW DOSE) (BILATERALLY)
     Route: 031
  2. LUCENTIS [Suspect]
     Active Substance: RANIBIZUMAB
     Dosage: 0.1 MG (LOW DOSE)
     Route: 031

REACTIONS (1)
  - Intestinal perforation [Unknown]
